FAERS Safety Report 10917315 (Version 1)
Quarter: 2015Q1

REPORT INFORMATION
  Report Type: Spontaneous
  Country: US (occurrence: None)
  Receive Date: 20150312
  Receipt Date: 20150312
  Transmission Date: 20150721
  Serious: Yes (Life-Threatening, Hospitalization)
  Sender: FDA-Public Use
  Company Number: None

PATIENT
  Age: 38 Year
  Sex: Female
  Weight: 62.6 kg

DRUGS (1)
  1. MULTIHANCE [Suspect]
     Active Substance: GADOBENATE DIMEGLUMINE

REACTIONS (5)
  - Dysgeusia [None]
  - Uterine spasm [None]
  - Contrast media allergy [None]
  - Anaphylactic reaction [None]
  - Appetite disorder [None]

NARRATIVE: CASE EVENT DATE: 20150219
